FAERS Safety Report 23617510 (Version 1)
Quarter: 2024Q1

REPORT INFORMATION
  Report Type: Report from Study
  Country: IT (occurrence: IT)
  Receive Date: 20240311
  Receipt Date: 20240311
  Transmission Date: 20240410
  Serious: Yes (Other)
  Sender: FDA-Public Use
  Company Number: None

PATIENT
  Age: 44 Year
  Sex: Female

DRUGS (3)
  1. PACLITAXEL [Suspect]
     Active Substance: PACLITAXEL
     Indication: Breast cancer
     Dosage: 120 MILLIGRAM(THERAPY START 17/01/2024 - WEEKLY THERAPY - CYCLE I, 17/01 WEEK I, 24/01 WEEK II)
     Route: 042
     Dates: start: 20240117, end: 20240124
  2. CARBOPLATIN [Suspect]
     Active Substance: CARBOPLATIN
     Indication: Breast cancer
     Dosage: 150 MILLIGRAM(THERAPY START 17/01/2024 - WEEKLY THERAPY - CYCLE I, 17/01 WEEK I, 24/01 WEEK II)
     Route: 042
     Dates: start: 20240117, end: 20240124
  3. PEMBROLIZUMAB [Suspect]
     Active Substance: PEMBROLIZUMAB
     Indication: Breast cancer
     Dosage: 200 MILLIGRAM(THERAPY START 04/12/2023 - THERAPY EVERY 21 DAYS - CYCLE III WITH PEMBROLIZUMAB)
     Route: 042
     Dates: start: 20240117, end: 20240117

REACTIONS (2)
  - Leukopenia [Recovering/Resolving]
  - Off label use [Recovering/Resolving]

NARRATIVE: CASE EVENT DATE: 20240117
